FAERS Safety Report 7901833-7 (Version None)
Quarter: 2011Q4

REPORT INFORMATION
  Report Type: 
  Country: None (occurrence: None)
  Receive Date: 20111108
  Receipt Date: 20111030
  Transmission Date: 20120403
  Serious: Yes (Hospitalization)
  Sender: FDA-Public Use
  Company Number: NZ-B.I. PHARMACEUTICALS,INC./RIDGEFIELD-2011-EU-00114AU

PATIENT
  Sex: Male

DRUGS (5)
  1. DABIGATRAN [Suspect]
     Indication: ATRIAL FIBRILLATION
     Dosage: 110 MG
     Route: 048
     Dates: start: 20110811, end: 20110816
  2. WARFARIN SODIUM [Concomitant]
     Indication: ATRIAL FIBRILLATION
     Dates: end: 20110101
  3. METOPROLOL [Concomitant]
     Indication: ATRIAL FLUTTER
     Route: 048
     Dates: start: 20040608
  4. CILAZAPRIL [Concomitant]
     Indication: HYPERTENSION
     Dosage: 5 MG
     Route: 048
     Dates: start: 20081207
  5. ATORVASTATIN [Concomitant]
     Indication: HYPERCHOLESTEROLAEMIA
     Dosage: 20 MG
     Route: 048
     Dates: start: 20110413

REACTIONS (3)
  - PULMONARY EMBOLISM [None]
  - GASTROINTESTINAL HAEMORRHAGE [None]
  - MEDICATION ERROR [None]
